FAERS Safety Report 6326539-X (Version None)
Quarter: 2009Q3

REPORT INFORMATION
  Report Type: 
  Country: None (occurrence: None)
  Receive Date: 20090825
  Receipt Date: 20090820
  Transmission Date: 20100115
  Serious: Yes (Other)
  Sender: FDA-Public Use
  Company Number: US-AMGEN-QUU358232

PATIENT
  Sex: Male
  Weight: 90.8 kg

DRUGS (2)
  1. ENBREL [Suspect]
     Indication: RHEUMATOID ARTHRITIS
     Route: 058
     Dates: start: 20081201
  2. ENBREL [Suspect]
     Indication: PSORIASIS

REACTIONS (2)
  - DIABETES MELLITUS [None]
  - NEPHROLITHIASIS [None]
